FAERS Safety Report 9866401 (Version 6)
Quarter: 2017Q2

REPORT INFORMATION
  Report Type: Report from Study
  Country: CO (occurrence: CO)
  Receive Date: 20140204
  Receipt Date: 20170606
  Transmission Date: 20170830
  Serious: Yes (Other)
  Sender: FDA-Public Use
  Company Number: CO-ROCHE-1343258

PATIENT
  Age: 73 Year
  Sex: Male
  Weight: 78 kg

DRUGS (8)
  1. LOVASTATIN. [Concomitant]
     Active Substance: LOVASTATIN
  2. METFORMIN [Concomitant]
     Active Substance: METFORMIN HYDROCHLORIDE
  3. RANIBIZUMAB [Suspect]
     Active Substance: RANIBIZUMAB
     Indication: RETINAL VEIN OCCLUSION
     Route: 050
     Dates: start: 201310
  4. LEVOTHYROXINE. [Concomitant]
     Active Substance: LEVOTHYROXINE
  5. ASPIRIN. [Concomitant]
     Active Substance: ASPIRIN
  6. RANIBIZUMAB [Suspect]
     Active Substance: RANIBIZUMAB
     Indication: MACULAR DEGENERATION
     Route: 050
     Dates: start: 201311
  7. RANIBIZUMAB [Suspect]
     Active Substance: RANIBIZUMAB
     Route: 050
     Dates: start: 20131217, end: 20131217
  8. GLIBENCLAMIDE [Concomitant]
     Active Substance: GLYBURIDE

REACTIONS (6)
  - Ocular vascular disorder [Not Recovered/Not Resolved]
  - Eye haemorrhage [Unknown]
  - Eye movement disorder [Recovered/Resolved]
  - Ocular hyperaemia [Recovered/Resolved]
  - Visual impairment [Recovered/Resolved]
  - Visual impairment [Not Recovered/Not Resolved]

NARRATIVE: CASE EVENT DATE: 201312
